FAERS Safety Report 7901725-3 (Version None)
Quarter: 2011Q4

REPORT INFORMATION
  Report Type: 
  Country: None (occurrence: None)
  Receive Date: 20111108
  Receipt Date: 20111103
  Transmission Date: 20120403
  Serious: Yes (Other)
  Sender: FDA-Public Use
  Company Number: CHPA2011CA15436

PATIENT
  Age: 65 Year
  Sex: Male

DRUGS (4)
  1. FERROUS SULFATE TAB [Suspect]
     Indication: IRON DEFICIENCY
     Dosage: 1 DF, QD
     Route: 048
  2. FERROUS SULFATE TAB [Suspect]
     Dosage: 2 DF, QD
     Route: 048
  3. FERROUS SULFATE TAB [Suspect]
     Dosage: 3 DF, QD
     Route: 048
  4. IMURAN [Suspect]
     Indication: COLITIS ULCERATIVE
     Dosage: 3 DF, QD
     Route: 048

REACTIONS (5)
  - LEUKAEMIA [None]
  - OVERDOSE [None]
  - ATRIAL FIBRILLATION [None]
  - CONDITION AGGRAVATED [None]
  - COLITIS ULCERATIVE [None]
